FAERS Safety Report 22054358 (Version 1)
Quarter: 2023Q1

REPORT INFORMATION
  Report Type: Spontaneous
  Country: US (occurrence: US)
  Receive Date: 20230302
  Receipt Date: 20230302
  Transmission Date: 20230417
  Serious: No
  Sender: FDA-Public Use
  Company Number: US-NOVOPROD-1004981

PATIENT
  Age: 65 Year
  Sex: Male

DRUGS (2)
  1. SAXENDA [Suspect]
     Active Substance: LIRAGLUTIDE
     Indication: Weight decreased
  2. SAXENDA [Suspect]
     Active Substance: LIRAGLUTIDE
     Indication: Obesity
     Dosage: 3 MG, QD
     Route: 058
     Dates: start: 20220801

REACTIONS (5)
  - Infrequent bowel movements [Not Recovered/Not Resolved]
  - Decreased appetite [Not Recovered/Not Resolved]
  - Gastrointestinal disorder [Unknown]
  - Constipation [Recovered/Resolved]
  - Diarrhoea [Not Recovered/Not Resolved]

NARRATIVE: CASE EVENT DATE: 20220801
